FAERS Safety Report 23140227 (Version 1)
Quarter: 2023Q4

REPORT INFORMATION
  Report Type: Spontaneous
  Country: US (occurrence: None)
  Receive Date: 20231102
  Receipt Date: 20231102
  Transmission Date: 20240108
  Serious: No
  Sender: FDA-Public Use
  Company Number: 2023A246581

PATIENT

DRUGS (1)
  1. BREZTRI [Suspect]
     Active Substance: BUDESONIDE\FORMOTEROL\GLYCOPYRROLATE
     Route: 055

REACTIONS (4)
  - Fatigue [Unknown]
  - Asthenia [Unknown]
  - Asthma [Unknown]
  - Product use issue [Unknown]
